FAERS Safety Report 4358775-6 (Version None)
Quarter: 2004Q2

REPORT INFORMATION
  Report Type: 
  Country: None (occurrence: None)
  Receive Date: 20040517
  Receipt Date: 20040204
  Transmission Date: 20050107
  Serious: Yes (Hospitalization)
  Sender: FDA-Public Use
  Company Number: 200410271JP

PATIENT
  Age: 59 Year
  Sex: Male
  Weight: 66.5 kg

DRUGS (9)
  1. ARAVA [Suspect]
     Indication: RHEUMATOID ARTHRITIS
     Route: 048
     Dates: start: 20030927, end: 20040121
  2. NEOLAMIN 3B INJ. [Concomitant]
     Indication: NEUROPATHY PERIPHERAL
     Route: 042
  3. LIMETHASON [Concomitant]
     Indication: RHEUMATOID ARTHRITIS
     Route: 042
  4. KENACORT-A [Concomitant]
     Indication: RHEUMATOID ARTHRITIS
     Dosage: ROUTE: INTRAARTICULAR, INTRASYNOVIAL
     Route: 050
  5. OMNICAIN [Concomitant]
     Indication: RHEUMATOID ARTHRITIS
     Dosage: ROUTE: INTRAARTICULAR, INTRASYNOVIAL
     Route: 050
  6. PREDONINE [Concomitant]
     Indication: RHEUMATOID ARTHRITIS
     Route: 048
  7. VOLTAREN [Concomitant]
     Indication: RHEUMATOID ARTHRITIS
     Route: 048
  8. POLLAKISU [Concomitant]
     Indication: POLLAKIURIA
     Route: 048
     Dates: start: 20031018, end: 20031210
  9. BUP-4 [Concomitant]
     Indication: POLLAKIURIA
     Route: 048
     Dates: start: 20031211, end: 20040106

REACTIONS (12)
  - ACUTE RESPIRATORY DISTRESS SYNDROME [None]
  - APPENDICITIS PERFORATED [None]
  - DISSEMINATED INTRAVASCULAR COAGULATION [None]
  - GASTROENTERITIS STAPHYLOCOCCAL [None]
  - GENERAL PHYSICAL HEALTH DETERIORATION [None]
  - ILEUS PARALYTIC [None]
  - PERITONITIS [None]
  - PLEURAL EFFUSION [None]
  - PNEUMONIA STAPHYLOCOCCAL [None]
  - POST PROCEDURAL COMPLICATION [None]
  - REFUSAL OF TREATMENT BY PATIENT [None]
  - SEPTIC SHOCK [None]
